FAERS Safety Report 7821357-5 (Version None)
Quarter: 2011Q4

REPORT INFORMATION
  Report Type: 
  Country: None (occurrence: None)
  Receive Date: 20111018
  Receipt Date: 20100826
  Transmission Date: 20120403
  Serious: No
  Sender: FDA-Public Use
  Company Number: US-ASTRAZENECA-2010SE40307

PATIENT
  Age: 48 Year
  Sex: Female
  Weight: 124.7 kg

DRUGS (7)
  1. MOBIC [Concomitant]
  2. SINGULAIR [Concomitant]
     Indication: ASTHMA
  3. STRATTERA [Concomitant]
  4. ALLEGRA [Concomitant]
  5. SYMBICORT [Suspect]
     Indication: ASTHMA
     Dosage: 160 MCG 2 PUFFS IN THE MORNING AND EVENING
     Route: 055
     Dates: end: 20100101
  6. PROAIR HFA [Concomitant]
     Indication: ASTHMA
  7. CYMBALTA [Concomitant]

REACTIONS (2)
  - DRUG DOSE OMISSION [None]
  - DYSPNOEA [None]
